FAERS Safety Report 8015699-0 (Version None)
Quarter: 2011Q4

REPORT INFORMATION
  Report Type: 
  Country: None (occurrence: None)
  Receive Date: 20111230
  Receipt Date: 20111220
  Transmission Date: 20120403
  Serious: Yes (Hospitalization, Other)
  Sender: FDA-Public Use
  Company Number: GB-BAYER-2011-122993

PATIENT
  Age: 28 Year
  Sex: Female

DRUGS (12)
  1. BAMBUTEROL [Concomitant]
     Dosage: 20 MG, QD
  2. XOLAIR [Suspect]
     Indication: PRODUCT USED FOR UNKNOWN INDICATION
     Dosage: 375 MG, Q2WK
     Route: 058
     Dates: start: 20090901, end: 20100920
  3. PREDNISOLONE [Concomitant]
     Dosage: 17.5 MG, UNK
  4. FLUTICASONE PROPIONATE/SALMETEROL [Concomitant]
     Dosage: 500 ?G, UNK
  5. VENTOLIN [Concomitant]
     Dosage: 100 ?G, UNK
  6. MIRENA [Suspect]
     Dosage: 20 MCG/24HR, CONT
     Route: 015
  7. FEXOFENADINE [Concomitant]
     Dosage: 180 MG, QD
     Route: 048
  8. LAMOTRIGINE [Concomitant]
     Dosage: 75 MG, BID
  9. MOMETASONE FUROATE [Concomitant]
     Dosage: 2 DF, UNK
     Route: 045
  10. MONTELUKAST [Concomitant]
     Dosage: 10 MG, QD
  11. CALCICHEW D3 [Concomitant]
     Dosage: 2 DF, QD
  12. SLO-PHYLLIN [Concomitant]
     Dosage: 400 MG, BID

REACTIONS (9)
  - GRAND MAL CONVULSION [None]
  - THREATENED LABOUR [None]
  - PRURITUS [None]
  - VAGINAL HAEMORRHAGE [None]
  - PREMATURE LABOUR [None]
  - MENORRHAGIA [None]
  - RASH VESICULAR [None]
  - INFERTILITY [None]
  - PREGNANCY WITH CONTRACEPTIVE DEVICE [None]
